FAERS Safety Report 9459587 (Version 1)
Quarter: 2013Q3

REPORT INFORMATION
  Report Type: Spontaneous
  Country: US (occurrence: US)
  Receive Date: 20130815
  Receipt Date: 20130815
  Transmission Date: 20140515
  Serious: Yes (Hospitalization)
  Sender: FDA-Public Use
  Company Number: US-AMGEN-USASP2013055987

PATIENT
  Age: 36 Year
  Sex: Female

DRUGS (2)
  1. ENBREL [Suspect]
     Indication: PSORIATIC ARTHROPATHY
     Dosage: UNK
     Route: 065
     Dates: start: 2005
  2. ENBREL [Suspect]
     Indication: PSORIASIS

REACTIONS (14)
  - Dehydration [Not Recovered/Not Resolved]
  - Asthenia [Not Recovered/Not Resolved]
  - Immune system disorder [Not Recovered/Not Resolved]
  - Paraesthesia [Not Recovered/Not Resolved]
  - Memory impairment [Not Recovered/Not Resolved]
  - Fibromyalgia [Not Recovered/Not Resolved]
  - Joint stiffness [Unknown]
  - Arthralgia [Unknown]
  - Skin plaque [Not Recovered/Not Resolved]
  - Generalised erythema [Not Recovered/Not Resolved]
  - Pain [Not Recovered/Not Resolved]
  - Nasopharyngitis [Not Recovered/Not Resolved]
  - Psoriasis [Unknown]
  - Sinusitis [Not Recovered/Not Resolved]
